FAERS Safety Report 6898487-8 (Version None)
Quarter: 2010Q3

REPORT INFORMATION
  Report Type: 
  Country: None (occurrence: None)
  Receive Date: 20100802
  Receipt Date: 20071019
  Transmission Date: 20110219
  Serious: No
  Sender: FDA-Public Use
  Company Number: US-PFIZER INC-2007089292

PATIENT
  Age: 39 Year
  Sex: Female

DRUGS (3)
  1. LYRICA [Suspect]
     Indication: NECK PAIN
  2. SOMA [Concomitant]
  3. HYDROCODONE BITARTRATE [Concomitant]

REACTIONS (1)
  - IRRITABILITY [None]
